FAERS Safety Report 4652387-2 (Version None)
Quarter: 2005Q2

REPORT INFORMATION
  Report Type: 
  Country: None (occurrence: None)
  Receive Date: 20050502
  Receipt Date: 20050502
  Transmission Date: 20051028
  Serious: Yes (Other)
  Sender: FDA-Public Use
  Company Number: None

PATIENT
  Sex: Male
  Weight: 77.1115 kg

DRUGS (5)
  1. CITALOPRAM  20MG [Suspect]
     Indication: MOOD ALTERED
     Dosage: 20MG  DAILY ORAL
     Route: 048
     Dates: start: 20050225, end: 20050228
  2. GABAPENTIN [Concomitant]
  3. HYDROCODONE 5/ACETAMINOPHEN [Concomitant]
  4. TEMAZEPAM [Concomitant]
  5. CYCLOBENZAPRINE HCL [Concomitant]

REACTIONS (1)
  - PRIAPISM [None]
